FAERS Safety Report 9743176 (Version 2)
Quarter: 2015Q3

REPORT INFORMATION
  Report Type: Spontaneous
  Country: US (occurrence: US)
  Receive Date: 20131210
  Receipt Date: 20150804
  Transmission Date: 20151125
  Serious: No
  Sender: FDA-Public Use
  Company Number: US-GILEAD-2009-0024917

PATIENT
  Age: 73 Year
  Sex: Male

DRUGS (8)
  1. DILTIAZEM [Concomitant]
     Active Substance: DILTIAZEM
  2. DILTIAZEM [Concomitant]
     Active Substance: DILTIAZEM
  3. ALLOPURINOL. [Concomitant]
     Active Substance: ALLOPURINOL
  4. HYDRALAZINE [Concomitant]
     Active Substance: HYDRALAZINE HYDROCHLORIDE
  5. LETAIRIS [Suspect]
     Active Substance: AMBRISENTAN
     Indication: PULMONARY ARTERIAL HYPERTENSION
     Route: 048
     Dates: start: 20091009
  6. FLOMAX [Concomitant]
     Active Substance: TAMSULOSIN HYDROCHLORIDE
  7. ASA LO-DOSE [Concomitant]
  8. LIPITOR [Concomitant]
     Active Substance: ATORVASTATIN CALCIUM

REACTIONS (1)
  - Nasal congestion [Not Recovered/Not Resolved]

NARRATIVE: CASE EVENT DATE: 20090511
